FAERS Safety Report 8991264 (Version 1)
Quarter: 2012Q4

REPORT INFORMATION
  Report Type: 
  Country: GB (occurrence: GB)
  Receive Date: 20121231
  Receipt Date: 20121231
  Transmission Date: 20130627
  Serious: Yes (Other)
  Sender: FDA-Public Use
  Company Number: GB-ACCORD-015728

PATIENT
  Age: 53 Year
  Sex: Female
  Weight: 70 kg

DRUGS (19)
  1. BECONASE [Concomitant]
     Dates: start: 20121207
  2. GAVISCON ADVANCE [Concomitant]
     Dates: start: 20121207
  3. ANUSOL [Concomitant]
     Dates: start: 20121015, end: 20121112
  4. SIMVASTATIN [Suspect]
     Indication: DRUG USE FOR UNKNOWN INDICATION
     Dates: start: 20121207
  5. PARACETAMOL [Concomitant]
     Dates: start: 20121207
  6. TRAMADOL [Concomitant]
     Dates: start: 20120917, end: 20120924
  7. ATROPA BELLADONNA [Concomitant]
     Dates: start: 20120917, end: 20121015
  8. GLYCERYL TRINITRATE [Concomitant]
     Dates: start: 20121015
  9. PIROXICAM [Concomitant]
     Dates: start: 20121015, end: 20121112
  10. LANSOPRAZOLE [Concomitant]
     Dates: start: 20121207
  11. MEBEVERINE HYDROCHLORIDE [Concomitant]
     Dates: start: 20120917, end: 20120924
  12. ATORVASTATIN CALCIUM [Concomitant]
     Dates: start: 20120912, end: 20121031
  13. LORATADINE [Concomitant]
     Dates: start: 20121207
  14. CALCEOS [Concomitant]
     Dates: start: 20121207
  15. SITAGLIPTIN [Concomitant]
     Dates: start: 20121116
  16. LOSARTAN [Concomitant]
     Dates: start: 20121207
  17. METFORMIN [Concomitant]
     Dates: start: 20121207
  18. BENDROFLUMETHIAZIDE [Concomitant]
     Dates: start: 20121207
  19. PROCHLORPERAZINE [Concomitant]
     Dates: start: 20121015, end: 20121024

REACTIONS (1)
  - Rash pruritic [Recovered/Resolved]
